FAERS Safety Report 10472615 (Version 6)
Quarter: 2015Q1

REPORT INFORMATION
  Report Type: Report from Study
  Country: US (occurrence: US)
  Receive Date: 20140924
  Receipt Date: 20150317
  Transmission Date: 20150720
  Serious: Yes (Hospitalization)
  Sender: FDA-Public Use
  Company Number: US-009507513-1409USA011060

PATIENT
  Age: 58 Year
  Sex: Male
  Weight: 73.6 kg

DRUGS (6)
  1. PEGINTERFERON ALFA-2B [Suspect]
     Active Substance: PEGINTERFERON ALFA-2B
     Indication: HIV INFECTION
     Dosage: 120 MICROGRAM, QW
     Route: 058
     Dates: start: 20131007, end: 20140825
  2. RIBAVIRIN. [Suspect]
     Active Substance: RIBAVIRIN
     Indication: HEPATITIS C
     Dosage: 1000 MG PER DAY (400MG AM, 600MG PM)
     Route: 048
     Dates: start: 20131007, end: 20140519
  3. RIBAVIRIN. [Suspect]
     Active Substance: RIBAVIRIN
     Indication: HIV INFECTION
     Dosage: 400 MG, BID
     Route: 048
     Dates: start: 20140520, end: 20140901
  4. BOCEPREVIR [Suspect]
     Active Substance: BOCEPREVIR
     Indication: HIV INFECTION
  5. PEGINTERFERON ALFA-2B [Suspect]
     Active Substance: PEGINTERFERON ALFA-2B
     Indication: HEPATITIS C
  6. BOCEPREVIR [Suspect]
     Active Substance: BOCEPREVIR
     Indication: HEPATITIS C
     Dosage: 800 MG, Q8H
     Route: 048
     Dates: start: 20131104, end: 20140609

REACTIONS (1)
  - Abdominal wall mass [Recovered/Resolved]

NARRATIVE: CASE EVENT DATE: 20140902
